FAERS Safety Report 6135011-1 (Version None)
Quarter: 2009Q1

REPORT INFORMATION
  Report Type: 
  Country: None (occurrence: None)
  Receive Date: 20090327
  Receipt Date: 20090317
  Transmission Date: 20090719
  Serious: Yes (Hospitalization, Other)
  Sender: FDA-Public Use
  Company Number: US-AVENTIS-200912191US

PATIENT
  Sex: Male

DRUGS (4)
  1. LANTUS [Suspect]
     Dosage: DOSE: 12-14 UNITS
     Route: 058
  2. OPTICLIK (INSULIN INJECTION PEN) [Suspect]
  3. PLAVIX [Concomitant]
     Dosage: DOSE: UNK
  4. METOPROLOL [Concomitant]
     Dosage: DOSE: UNK

REACTIONS (8)
  - ARTERIAL REPAIR [None]
  - CATARACT OPERATION [None]
  - CORONARY ARTERY BYPASS [None]
  - HYPERGLYCAEMIA [None]
  - NEUROPATHY PERIPHERAL [None]
  - PNEUMONIA [None]
  - STENT PLACEMENT [None]
  - VISION BLURRED [None]
